FAERS Safety Report 5445045-8 (Version None)
Quarter: 2007Q3

REPORT INFORMATION
  Report Type: 
  Country: None (occurrence: None)
  Receive Date: 20070906
  Receipt Date: 20070820
  Transmission Date: 20080115
  Serious: No
  Sender: FDA-Public Use
  Company Number: US-PFIZER INC-2006126240

PATIENT
  Sex: Male

DRUGS (3)
  1. CELEBREX [Suspect]
  2. BEXTRA [Suspect]
  3. VIOXX [Suspect]
     Route: 048

REACTIONS (1)
  - NO ADVERSE REACTION [None]
